FAERS Safety Report 8910100 (Version 1)
Quarter: 2012Q4

REPORT INFORMATION
  Report Type: 
  Country: IT (occurrence: IT)
  Receive Date: 20121115
  Receipt Date: 20121115
  Transmission Date: 20130627
  Serious: Yes (Hospitalization)
  Sender: FDA-Public Use
  Company Number: IT-BRISTOL-MYERS SQUIBB COMPANY-17102823

PATIENT
  Age: 86 Year
  Sex: Male

DRUGS (6)
  1. COUMADIN TABS 5 MG [Suspect]
     Dosage: interr 27Oct12
     Route: 048
     Dates: start: 20120926
  2. RAMIPRIL [Concomitant]
  3. BISOPROLOL HEMIFUMARATE [Concomitant]
  4. LASIX [Concomitant]
     Dosage: dosage: 50 mg tablets
  5. FERROGRAD [Concomitant]
     Dosage: tabs
  6. EPREX [Concomitant]

REACTIONS (4)
  - Epistaxis [Recovering/Resolving]
  - Vomiting [Recovering/Resolving]
  - Decreased appetite [Recovering/Resolving]
  - Overdose [Recovering/Resolving]
